FAERS Safety Report 16665078 (Version 1)
Quarter: 2019Q3

REPORT INFORMATION
  Report Type: Spontaneous
  Country: US (occurrence: US)
  Receive Date: 20190803
  Receipt Date: 20190803
  Transmission Date: 20191004
  Serious: Yes (Other)
  Sender: FDA-Public Use
  Company Number: US-ACCORD-072679

PATIENT
  Age: 49 Year
  Sex: Female
  Weight: 113.4 kg

DRUGS (15)
  1. CYTOXAN [Suspect]
     Active Substance: CYCLOPHOSPHAMIDE
     Indication: BREAST CANCER
     Dates: start: 20150402, end: 20150717
  2. DIOVAN [Concomitant]
     Active Substance: VALSARTAN
     Dates: start: 2005
  3. METFORMIN [Concomitant]
     Active Substance: METFORMIN HYDROCHLORIDE
     Dates: start: 2016
  4. ACETYLSALICYLIC ACID [Concomitant]
     Active Substance: ASPIRIN
  5. DOCETAXEL ACCORD [Suspect]
     Active Substance: DOCETAXEL
     Indication: BREAST CANCER
     Dates: start: 20150402, end: 20150717
  6. TYLENOL [Concomitant]
     Active Substance: ACETAMINOPHEN
  7. MOTRIN [Concomitant]
     Active Substance: IBUPROFEN
  8. IMODIUM [Concomitant]
     Active Substance: LOPERAMIDE HYDROCHLORIDE
  9. TOPROL XL [Concomitant]
     Active Substance: METOPROLOL SUCCINATE
     Dates: start: 2010
  10. TAMOXIFEN [Concomitant]
     Active Substance: TAMOXIFEN
     Dates: start: 2015
  11. ZOFRAN [Concomitant]
     Active Substance: ONDANSETRON HYDROCHLORIDE
  12. LIPITOR [Concomitant]
     Active Substance: ATORVASTATIN CALCIUM
     Dates: start: 2010
  13. ZOLOFT [Concomitant]
     Active Substance: SERTRALINE HYDROCHLORIDE
     Dates: start: 2009, end: 2015
  14. EFFEXOR [Concomitant]
     Active Substance: VENLAFAXINE HYDROCHLORIDE
     Dates: start: 2015
  15. ZOCOR [Concomitant]
     Active Substance: SIMVASTATIN
     Dates: start: 2010

REACTIONS (1)
  - Alopecia [Not Recovered/Not Resolved]
